FAERS Safety Report 7555059-X (Version None)
Quarter: 2011Q2

REPORT INFORMATION
  Report Type: 
  Country: None (occurrence: None)
  Receive Date: 20110610
  Receipt Date: 20110531
  Transmission Date: 20111010
  Serious: Yes (Other)
  Sender: FDA-Public Use
  Company Number: 1000021510

PATIENT
  Age: 69 Year
  Sex: Female

DRUGS (5)
  1. RABEPRAZOLE SODIUM [Suspect]
     Indication: ILL-DEFINED DISORDER
     Dosage: (ONCE), ORAL
     Route: 048
     Dates: start: 20110515, end: 20110515
  2. ESCITALOPRAM OXALATE [Suspect]
     Indication: ILL-DEFINED DISORDER
     Dosage: (560 MG, ONCE), ORAL
     Route: 048
     Dates: start: 20110515, end: 20110515
  3. FLURAZEPAM HYDROCHLORIDE [Suspect]
     Indication: ILL-DEFINED DISORDER
     Dosage: (900 MG, ONCE)
     Dates: start: 20110515, end: 20110515
  4. PROMAZINE HYDROCHLORIDE [Suspect]
     Dosage: 30 ML (ONCE), ORAL
     Route: 048
     Dates: start: 20110515, end: 20110515
  5. LORAZEPAM [Suspect]
     Indication: ILL-DEFINED DISORDER
     Dosage: (100 MG, ONCE), ORAL
     Route: 047
     Dates: start: 20110515, end: 20110515

REACTIONS (3)
  - INTENTIONAL SELF-INJURY [None]
  - MULTIPLE DRUG OVERDOSE INTENTIONAL [None]
  - SOPOR [None]
